FAERS Safety Report 7919561-0 (Version None)
Quarter: 2011Q4

REPORT INFORMATION
  Report Type: 
  Country: None (occurrence: None)
  Receive Date: 20111116
  Receipt Date: 20111116
  Transmission Date: 20120403
  Serious: Yes (Hospitalization)
  Sender: FDA-Public Use
  Company Number: None

PATIENT
  Age: 41 Year
  Sex: Male
  Weight: 105 kg

DRUGS (13)
  1. CEFTRIAXONE [Suspect]
     Indication: INFECTION
     Dosage: 2GM Q12H IVPB RECENT
     Route: 042
  2. TRUVADA [Concomitant]
  3. WELLBUTRIN SR [Concomitant]
  4. ISENTRESS [Concomitant]
  5. OXYMORPHONE [Concomitant]
  6. ANDROCET [Concomitant]
  7. CLONAZEPAM [Concomitant]
  8. FLUCONAZOLE [Concomitant]
  9. SELZENTRY [Concomitant]
  10. METFORMIN HCL [Concomitant]
  11. LIDOCAINE [Concomitant]
  12. PROMETHAZINE [Concomitant]
  13. METHADONE HCL [Concomitant]

REACTIONS (6)
  - HEADACHE [None]
  - DRUG HYPERSENSITIVITY [None]
  - TACHYCARDIA [None]
  - PYREXIA [None]
  - HYPOTENSION [None]
  - FLUSHING [None]
